FAERS Safety Report 8090908-0 (Version None)
Quarter: 2012Q1

REPORT INFORMATION
  Report Type: 
  Country: None (occurrence: None)
  Receive Date: 20120128
  Receipt Date: 20110817
  Transmission Date: 20120608
  Serious: Yes (Other)
  Sender: FDA-Public Use
  Company Number: US-ABBOTT-11P-163-0848058-00

PATIENT
  Age: 55 Year
  Sex: Male

DRUGS (4)
  1. CORGARD [Concomitant]
     Indication: PRODUCT USED FOR UNKNOWN INDICATION
  2. OMEPRAZOLE [Concomitant]
     Indication: PRODUCT USED FOR UNKNOWN INDICATION
  3. HUMIRA [Suspect]
     Indication: CROHN'S DISEASE
     Dates: start: 20110201, end: 20110601
  4. LISINOPRIL [Concomitant]
     Indication: PRODUCT USED FOR UNKNOWN INDICATION

REACTIONS (2)
  - INTESTINAL RESECTION [None]
  - APPENDICECTOMY [None]
